FAERS Safety Report 23718111 (Version 1)
Quarter: 2024Q2

REPORT INFORMATION
  Report Type: Spontaneous
  Country: CN (occurrence: CN)
  Receive Date: 20240408
  Receipt Date: 20240408
  Transmission Date: 20240716
  Serious: Yes (Other)
  Sender: FDA-Public Use
  Company Number: CN-ROCHE-3538340

PATIENT
  Age: 72 Year
  Sex: Male

DRUGS (4)
  1. CAPECITABINE [Suspect]
     Active Substance: CAPECITABINE
     Indication: Colon cancer stage IV
     Route: 048
     Dates: start: 20240318, end: 20240321
  2. BEVACIZUMAB [Suspect]
     Active Substance: BEVACIZUMAB
     Indication: Colon cancer stage IV
     Route: 041
     Dates: start: 20240318, end: 20240318
  3. IRINOTECAN HYDROCHLORIDE [Suspect]
     Active Substance: IRINOTECAN HYDROCHLORIDE
     Indication: Colon cancer stage IV
     Route: 041
     Dates: start: 20240318, end: 20240318
  4. FLUOROURACIL [Concomitant]
     Active Substance: FLUOROURACIL
     Dosage: 5 CYCLES OF SINGLE-AGENT

REACTIONS (3)
  - Monocyte count decreased [Recovering/Resolving]
  - Diarrhoea [Recovering/Resolving]
  - Decreased appetite [Recovering/Resolving]

NARRATIVE: CASE EVENT DATE: 20240320
